FAERS Safety Report 7279673-4 (Version None)
Quarter: 2011Q1

REPORT INFORMATION
  Report Type: 
  Country: None (occurrence: None)
  Receive Date: 20110208
  Receipt Date: 20110127
  Transmission Date: 20110831
  Serious: Yes (Life-Threatening, Other)
  Sender: FDA-Public Use
  Company Number: JP-CELGENEUS-087-21880-10112252

PATIENT
  Sex: Female
  Weight: 58.7 kg

DRUGS (18)
  1. BAKTAR [Concomitant]
     Indication: PROPHYLAXIS
     Route: 048
     Dates: start: 20100210
  2. PANTETHINE [Concomitant]
     Indication: PROPHYLAXIS
     Route: 048
     Dates: start: 20100210
  3. MAGLAX [Concomitant]
     Indication: PROPHYLAXIS
     Route: 048
     Dates: start: 20100210
  4. MORPHES [Concomitant]
     Indication: MULTIPLE MYELOMA
     Route: 048
     Dates: start: 20100927
  5. SAWACILLIN [Concomitant]
     Indication: MEDIASTINAL ABSCESS
  6. LENADEX [Suspect]
     Indication: MULTIPLE MYELOMA
     Route: 048
     Dates: start: 20100904, end: 20100908
  7. GASTER D [Concomitant]
     Indication: PROPHYLAXIS
     Route: 048
     Dates: start: 20100210
  8. SAWACILLIN [Concomitant]
     Indication: PROPHYLAXIS
     Route: 048
     Dates: start: 20101002, end: 20101010
  9. FLOMOX [Concomitant]
     Indication: PAIN
     Route: 065
     Dates: start: 20100906
  10. REVLIMID [Suspect]
     Route: 048
     Dates: start: 20101005, end: 20101010
  11. REVLIMID [Suspect]
     Route: 048
     Dates: start: 20101019, end: 20101025
  12. MUCOSTA [Concomitant]
     Indication: PROPHYLAXIS
     Route: 048
     Dates: start: 20100210
  13. NORVASC [Concomitant]
     Indication: HYPERTENSION
     Route: 048
     Dates: start: 20100210
  14. DALACIN [Concomitant]
     Indication: MEDIASTINAL ABSCESS
  15. REVLIMID [Suspect]
     Indication: MULTIPLE MYELOMA
     Route: 048
     Dates: start: 20100904, end: 20100908
  16. REVLIMID [Suspect]
     Route: 048
     Dates: start: 20101026, end: 20101108
  17. ASPIRIN [Concomitant]
     Indication: PROPHYLAXIS
     Route: 048
     Dates: start: 20100904, end: 20100908
  18. DALACIN [Concomitant]
     Indication: PROPHYLAXIS
     Route: 048
     Dates: start: 20101002, end: 20101010

REACTIONS (2)
  - MEDIASTINAL ABSCESS [None]
  - HYPERSENSITIVITY [None]
